FAERS Safety Report 7386811-1 (Version None)
Quarter: 2011Q1

REPORT INFORMATION
  Report Type: 
  Country: None (occurrence: None)
  Receive Date: 20110331
  Receipt Date: 20110317
  Transmission Date: 20110831
  Serious: Yes (Other)
  Sender: FDA-Public Use
  Company Number: PHHY2011US25547

PATIENT
  Age: 51 Year
  Sex: Male

DRUGS (1)
  1. METHYLPREDNISOLONE [Suspect]
     Indication: MYELITIS

REACTIONS (5)
  - SPINAL CORD DISORDER [None]
  - SPINAL VASCULAR DISORDER [None]
  - DURAL FISTULA [None]
  - PARAPLEGIA [None]
  - GAIT DISTURBANCE [None]
